FAERS Safety Report 7591956-7 (Version None)
Quarter: 2011Q3

REPORT INFORMATION
  Report Type: 
  Country: None (occurrence: None)
  Receive Date: 20110701
  Receipt Date: 20110701
  Transmission Date: 20111222
  Serious: Yes (Life-Threatening, Hospitalization, Other)
  Sender: FDA-Public Use
  Company Number: None

PATIENT
  Age: 75 Year
  Sex: Female
  Weight: 88.4514 kg

DRUGS (2)
  1. CIPROFLOXACIN [Suspect]
     Indication: URINARY TRACT INFECTION
     Dosage: 250 MG TAB 2 A DAY FOR 7 DAYS BY MOUTH
     Route: 048
     Dates: start: 20110318, end: 20110331
  2. CIPROFLOXACIN [Suspect]
     Indication: BLOOD URINE PRESENT
     Dosage: 250 MG TAB 2 A DAY FOR 7 DAYS BY MOUTH
     Route: 048
     Dates: start: 20110318, end: 20110331

REACTIONS (10)
  - FATIGUE [None]
  - DIZZINESS [None]
  - DIARRHOEA [None]
  - ASTHENIA [None]
  - CHEST DISCOMFORT [None]
  - RESTLESSNESS [None]
  - MYALGIA [None]
  - INTESTINAL HAEMORRHAGE [None]
  - FALL [None]
  - CONTUSION [None]
